FAERS Safety Report 6885217-9 (Version None)
Quarter: 2010Q3

REPORT INFORMATION
  Report Type: 
  Country: None (occurrence: None)
  Receive Date: 20100729
  Receipt Date: 20100723
  Transmission Date: 20110219
  Serious: Yes (Hospitalization)
  Sender: FDA-Public Use
  Company Number: US-AMGEN-KDC426554

PATIENT
  Age: 71 Year
  Sex: Male
  Weight: 96.3 kg

DRUGS (10)
  1. PANITUMUMAB [Suspect]
     Indication: PANCREATIC CARCINOMA
     Dates: start: 20100630
  2. GEMCITABINE [Suspect]
     Dates: start: 20100630
  3. ERLOTINIB HYDROCHLORIDE [Suspect]
     Dates: start: 20100630
  4. CARDURA [Concomitant]
  5. CIPROFLOXACIN [Concomitant]
  6. COREG [Concomitant]
  7. COUMADIN [Concomitant]
  8. MAGNESIUM OXIDE [Concomitant]
  9. PRINIVIL [Concomitant]
  10. PROSCAR [Concomitant]

REACTIONS (4)
  - CEREBRAL ISCHAEMIA [None]
  - DECUBITUS ULCER [None]
  - HAEMOGLOBIN DECREASED [None]
  - PYREXIA [None]
